FAERS Safety Report 12271641 (Version 5)
Quarter: 2016Q3

REPORT INFORMATION
  Report Type: Report from Study
  Country: FR (occurrence: FR)
  Receive Date: 20160415
  Receipt Date: 20160726
  Transmission Date: 20161109
  Serious: Yes (Hospitalization)
  Sender: FDA-Public Use
  Company Number: FR-BEH-2016061153

PATIENT
  Age: 63 Year
  Sex: Female
  Weight: 50 kg

DRUGS (10)
  1. CARBOPLATIN. [Suspect]
     Active Substance: CARBOPLATIN
     Indication: LUNG NEOPLASM MALIGNANT
     Route: 042
     Dates: start: 20150722, end: 20150724
  2. VP 16 [Suspect]
     Active Substance: ETOPOSIDE
     Indication: LUNG NEOPLASM MALIGNANT
     Dosage: UNK
     Route: 042
     Dates: start: 20150722, end: 20150724
  3. PRIVIGEN [Suspect]
     Active Substance: HUMAN IMMUNOGLOBULIN G
     Dosage: 400 MG/KG, QD
     Route: 042
     Dates: start: 20150812, end: 20150814
  4. PRIVIGEN [Suspect]
     Active Substance: HUMAN IMMUNOGLOBULIN G
     Indication: PARANEOPLASTIC NEUROLOGICAL SYNDROME
     Route: 042
     Dates: start: 20150710, end: 20150711
  5. PRIVIGEN [Suspect]
     Active Substance: HUMAN IMMUNOGLOBULIN G
     Dosage: 400 MG/KG, QD
     Route: 042
     Dates: start: 20150810, end: 20150811
  6. LERCANIDIPINE [Concomitant]
     Active Substance: LERCANIDIPINE
     Indication: HYPERTENSION
     Dosage: START DATE: ??-NOV-2008
     Route: 048
  7. PRIVIGEN [Suspect]
     Active Substance: HUMAN IMMUNOGLOBULIN G
     Indication: ANTI-NEURONAL ANTIBODY POSITIVE
     Dosage: UNK
     Route: 042
     Dates: start: 20150712, end: 20150714
  8. CARBOPLATIN. [Suspect]
     Active Substance: CARBOPLATIN
     Route: 042
     Dates: start: 20150817
  9. PREGABALIN. [Concomitant]
     Active Substance: PREGABALIN
     Indication: PAIN
     Dosage: START DATE: ??-JUN-2015
     Route: 048
  10. VP 16 [Suspect]
     Active Substance: ETOPOSIDE
     Dosage: UNK
     Route: 042
     Dates: start: 20150817

REACTIONS (8)
  - Pancytopenia [Recovered/Resolved]
  - Chills [Recovered/Resolved]
  - Pyrexia [Recovered/Resolved]
  - Sinus tachycardia [Recovered/Resolved]
  - Pseudomonal sepsis [Recovered/Resolved]
  - Acute kidney injury [Recovered/Resolved]
  - Hypoxia [Recovered/Resolved]
  - Labile blood pressure [Recovered/Resolved]

NARRATIVE: CASE EVENT DATE: 20150822
